FAERS Safety Report 6574306-4 (Version None)
Quarter: 2010Q1

REPORT INFORMATION
  Report Type: 
  Country: None (occurrence: None)
  Receive Date: 20100201
  Receipt Date: 20100115
  Transmission Date: 20100710
  Serious: Yes (Hospitalization)
  Sender: FDA-Public Use
  Company Number: 2010000227

PATIENT
  Age: 72 Year
  Sex: Female

DRUGS (2)
  1. TARCEVA [Suspect]
     Indication: NON-SMALL CELL LUNG CANCER
     Dosage: (150 MG,QD), ORAL
     Route: 048
     Dates: start: 20091001
  2. LEVOFLOXACIN [Concomitant]

REACTIONS (5)
  - COMA [None]
  - EPISTAXIS [None]
  - HEART RATE INCREASED [None]
  - INFLUENZA [None]
  - RASH PUSTULAR [None]
